FAERS Safety Report 7930330-8 (Version None)
Quarter: 2011Q4

REPORT INFORMATION
  Report Type: 
  Country: None (occurrence: None)
  Receive Date: 20111121
  Receipt Date: 20111115
  Transmission Date: 20120403
  Serious: Yes (Hospitalization)
  Sender: FDA-Public Use
  Company Number: US-ELI_LILLY_AND_COMPANY-US201111005070

PATIENT
  Sex: Female

DRUGS (5)
  1. COREG [Concomitant]
  2. EFFIENT [Suspect]
     Indication: STENT PLACEMENT
     Dosage: 10 MG, QD
     Dates: start: 20110601
  3. ZOCOR [Concomitant]
     Dosage: 40 MG, UNK
  4. PEPCID [Concomitant]
  5. BACTRIM [Concomitant]
     Dosage: UNK, AS NEEDED

REACTIONS (3)
  - CONTUSION [None]
  - IN-STENT CORONARY ARTERY RESTENOSIS [None]
  - ABDOMINAL DISCOMFORT [None]
